FAERS Safety Report 4928528-6 (Version None)
Quarter: 2006Q1

REPORT INFORMATION
  Report Type: 
  Country: None (occurrence: None)
  Receive Date: 20060223
  Receipt Date: 20060220
  Transmission Date: 20060701
  Serious: Yes (Hospitalization)
  Sender: FDA-Public Use
  Company Number: 200610710GDS

PATIENT
  Age: 50 Year
  Sex: Male
  Weight: 50 kg

DRUGS (2)
  1. GLUCOBAY [Suspect]
     Indication: DIABETES MELLITUS NON-INSULIN-DEPENDENT
     Dosage: 50 MG, TID, ORAL; SEE IMAGE
     Route: 048
     Dates: start: 20060114
  2. GLUCOBAY [Suspect]
     Indication: DIABETES MELLITUS NON-INSULIN-DEPENDENT
     Dosage: 50 MG, TID, ORAL; SEE IMAGE
     Route: 048
     Dates: start: 20060121

REACTIONS (1)
  - VOMITING [None]
